FAERS Safety Report 24256807 (Version 2)
Quarter: 2024Q3

REPORT INFORMATION
  Report Type: Report from Study
  Country: US (occurrence: US)
  Receive Date: 20240828
  Receipt Date: 20240904
  Transmission Date: 20241017
  Serious: Yes (Other)
  Sender: EMD SERONO INC
  Company Number: US-Merck Healthcare KGaA-2024045567

PATIENT
  Age: 44 Year
  Sex: Female

DRUGS (1)
  1. REBIF [Suspect]
     Active Substance: INTERFERON BETA-1A
     Indication: Multiple sclerosis
     Dosage: FIRST SHIP DATE: 13-MAY-2024?LAST SHIP DATE: 17-JUL-2024
     Route: 058
     Dates: start: 20240228, end: 20240815

REACTIONS (3)
  - Diabetes mellitus [Unknown]
  - Memory impairment [Unknown]
  - Brain fog [Unknown]
